FAERS Safety Report 8987103 (Version 1)
Quarter: 2012Q4

REPORT INFORMATION
  Report Type: Report from Study
  Country: FR (occurrence: FR)
  Receive Date: 20121227
  Receipt Date: 20121227
  Transmission Date: 20130627
  Serious: Yes (Hospitalization, Other)
  Sender: FDA-Public Use
  Company Number: PHHO2010FR18483

PATIENT
  Age: 6 Year
  Sex: Female
  Weight: 19.6 kg

DRUGS (3)
  1. PLACEBO [Suspect]
     Indication: JUVENILE ARTHRITIS
     Dosage: UNK
     Route: 058
     Dates: start: 20101118, end: 20101206
  2. ACZ885 [Suspect]
     Indication: JUVENILE ARTHRITIS
     Dosage: UNK
     Dates: start: 20100305, end: 20100923
  3. NALBUPHINE HYDROCHLORIDE [Suspect]
     Indication: PAIN
     Dosage: UNK
     Dates: start: 20101205

REACTIONS (9)
  - Respiratory disorder [Recovered/Resolved]
  - Pneumonia [Recovered/Resolved]
  - Cough [Recovered/Resolved]
  - Pyrexia [Recovered/Resolved]
  - Measles [Not Recovered/Not Resolved]
  - Pain [Recovered/Resolved]
  - Oral disorder [Recovered/Resolved]
  - Feeding disorder [Recovered/Resolved]
  - Concomitant disease progression [Not Recovered/Not Resolved]
